FAERS Safety Report 7062525-2 (Version None)
Quarter: 2010Q4

REPORT INFORMATION
  Report Type: 
  Country: None (occurrence: None)
  Receive Date: 20101026
  Receipt Date: 20091124
  Transmission Date: 20110411
  Serious: No
  Sender: FDA-Public Use
  Company Number: US-PFIZER INC-2009281033

PATIENT
  Sex: Male
  Weight: 93 kg

DRUGS (6)
  1. LIPITOR [Suspect]
     Indication: BLOOD CHOLESTEROL INCREASED
     Dosage: 20 MG, 1X/DAY
     Route: 048
     Dates: start: 20090602, end: 20090921
  2. ALISKIREN [Concomitant]
     Dosage: 300 MG, UNK
  3. VALSARTAN [Concomitant]
     Dosage: 320 MG, UNK
  4. NEBIVOLOL [Concomitant]
     Dosage: 5 MG, UNK
  5. ACIPHEX [Concomitant]
     Dosage: 20 MG, UNK
  6. PLAVIX [Concomitant]
     Dosage: 75 MG, UNK

REACTIONS (2)
  - HEPATIC ENZYME INCREASED [None]
  - MUSCLE SPASMS [None]
